FAERS Safety Report 4286205-1 (Version None)
Quarter: 2004Q1

REPORT INFORMATION
  Report Type: 
  Country: None (occurrence: None)
  Receive Date: 20040204
  Receipt Date: 20040204
  Transmission Date: 20041129
  Serious: Yes (Other)
  Sender: FDA-Public Use
  Company Number: None

PATIENT
  Sex: Female

DRUGS (2)
  1. PAROXETINE HCL [Suspect]
     Indication: DEPRESSION
     Dosage: 20 MG PO QHS
     Route: 048
     Dates: start: 20040109, end: 20040202
  2. PAROXETINE HCL [Suspect]
     Indication: NIGHTMARE
     Dosage: 20 MG PO QHS
     Route: 048
     Dates: start: 20040109, end: 20040202

REACTIONS (3)
  - CONDITION AGGRAVATED [None]
  - NIGHTMARE [None]
  - PHARMACEUTICAL PRODUCT COMPLAINT [None]
